FAERS Safety Report 10182934 (Version 1)
Quarter: 2014Q2

REPORT INFORMATION
  Report Type: Spontaneous
  Country: US (occurrence: US)
  Receive Date: 20140520
  Receipt Date: 20140520
  Transmission Date: 20141212
  Serious: No
  Sender: FDA-Public Use
  Company Number: US-PFIZER INC-2014134641

PATIENT
  Sex: Female

DRUGS (6)
  1. ADVIL [Suspect]
     Dosage: 200 MG, UNK
     Dates: start: 201405
  2. ASPIRIN [Concomitant]
     Dosage: 81 MG, 1X/DAY
  3. FEXOFENADINE [Concomitant]
     Dosage: UNK,1X/DAY
  4. AZELASTINE [Concomitant]
     Dosage: UNK
  5. ZOCOR [Concomitant]
     Dosage: UNK
  6. ALLEGRA [Concomitant]
     Dosage: UNK

REACTIONS (2)
  - Therapeutic response changed [Unknown]
  - Pre-existing condition improved [Unknown]
